FAERS Safety Report 5231240-X (Version None)
Quarter: 2007Q1

REPORT INFORMATION
  Report Type: 
  Country: None (occurrence: None)
  Receive Date: 20070206
  Receipt Date: 20070131
  Transmission Date: 20070707
  Serious: Yes (Death)
  Sender: FDA-Public Use
  Company Number: 2007AC00171

PATIENT
  Age: 82 Year
  Sex: Female

DRUGS (6)
  1. BUPIVACAINE [Suspect]
  2. LIDOCAINE [Suspect]
  3. HYALASE [Suspect]
  4. BENDROFLUAZIDE [Concomitant]
  5. AMETHOCAINE [Concomitant]
  6. POVIDINE [Concomitant]

REACTIONS (2)
  - CARDIAC ARREST [None]
  - GRAND MAL CONVULSION [None]
